FAERS Safety Report 19816877 (Version 1)
Quarter: 2021Q3

REPORT INFORMATION
  Report Type: Report from Study
  Country: DE (occurrence: DE)
  Receive Date: 20210910
  Receipt Date: 20210910
  Transmission Date: 20211014
  Serious: Yes (Death, Hospitalization)
  Sender: FDA-Public Use
  Company Number: DE-TEVA-2021-DE-1947216

PATIENT
  Age: 60 Year
  Sex: Male

DRUGS (2)
  1. HYDROMORPHONE [Suspect]
     Active Substance: HYDROMORPHONE
     Indication: PRODUCT USED FOR UNKNOWN INDICATION
     Dosage: 96 MILLIGRAM DAILY; 32 MILLIGRAM, TID 3 SEPARATED DOSES
     Route: 048
     Dates: start: 202105, end: 20210813
  2. AMG 510 [Suspect]
     Active Substance: AMG-510
     Indication: NON-SMALL CELL LUNG CANCER
     Dosage: 960 MILLIGRAM DAILY;
     Route: 048
     Dates: start: 20210715, end: 20210809

REACTIONS (1)
  - Sopor [Fatal]

NARRATIVE: CASE EVENT DATE: 20210808
